FAERS Safety Report 15081332 (Version 1)
Quarter: 2018Q2

REPORT INFORMATION
  Report Type: Spontaneous
  Country: GB (occurrence: GB)
  Receive Date: 20180628
  Receipt Date: 20180628
  Transmission Date: 20180711
  Serious: Yes (Hospitalization)
  Sender: FDA-Public Use
  Company Number: GB-KRKA, D.D., NOVO MESTO-2050100

PATIENT
  Sex: Female

DRUGS (8)
  1. MIRTAZAPINE. [Suspect]
     Active Substance: MIRTAZAPINE
  2. DOXAZOSIN [Suspect]
     Active Substance: DOXAZOSIN\DOXAZOSIN MESYLATE
  3. SPIRONOLACTONE. [Suspect]
     Active Substance: SPIRONOLACTONE
  4. LANSOPRAZOLE. [Suspect]
     Active Substance: LANSOPRAZOLE
  5. RAMIPRIL. [Suspect]
     Active Substance: RAMIPRIL
  6. APIXABAN [Suspect]
     Active Substance: APIXABAN
  7. FUROSEMIDE. [Suspect]
     Active Substance: FUROSEMIDE
  8. BISOPROLOL FUMARATE. [Suspect]
     Active Substance: BISOPROLOL FUMARATE

REACTIONS (1)
  - Ischaemic stroke [Recovered/Resolved with Sequelae]
